FAERS Safety Report 10467267 (Version 7)
Quarter: 2015Q4

REPORT INFORMATION
  Report Type: Report from Study
  Country: DE (occurrence: DE)
  Receive Date: 20140922
  Receipt Date: 20151125
  Transmission Date: 20160304
  Serious: Yes (Death, Hospitalization, Other)
  Sender: FDA-Public Use
  Company Number: PHHY2014DE120355

PATIENT
  Sex: Male
  Weight: 62 kg

DRUGS (14)
  1. SYMBICORT [Concomitant]
     Active Substance: BUDESONIDE\FORMOTEROL FUMARATE DIHYDRATE
     Indication: CHRONIC OBSTRUCTIVE PULMONARY DISEASE
     Dosage: 1 DF, BID (320/9 UG) (1-0-1 IN THE MORNING AND THE EVENING)
     Route: 065
     Dates: start: 20140701
  2. PANTOPRAZOL [Concomitant]
     Active Substance: PANTOPRAZOLE SODIUM
     Indication: PRODUCT USED FOR UNKNOWN INDICATION
     Dosage: 20 MG, UNK
     Route: 065
  3. VALORON [Concomitant]
     Active Substance: TILIDINE HYDROCHLORIDE
     Indication: PRODUCT USED FOR UNKNOWN INDICATION
     Dosage: 1 DF, BID (100/8 MG, DAILY IN THE MORNING AND THE EVENING)
     Route: 065
     Dates: start: 20140417, end: 20140701
  4. PANTOPRAZOL [Concomitant]
     Active Substance: PANTOPRAZOLE SODIUM
     Dosage: 40 MG, DAILY IN THE MORNING
     Route: 065
     Dates: start: 20140417, end: 20140701
  5. SEEBRI BREEZHALER [Suspect]
     Active Substance: GLYCOPYRROLATE
     Indication: CHRONIC OBSTRUCTIVE PULMONARY DISEASE
     Dosage: 44 UG, QD
     Route: 065
     Dates: start: 20130905, end: 2013
  6. L-THYROXIN BETA [Concomitant]
     Indication: THYROID DISORDER
     Dosage: 25 UG, QD (DAILY IN THE MORNING)
     Route: 065
  7. ULTIBRO BREEZHALER [Suspect]
     Active Substance: GLYCOPYRRONIUM\INDACATEROL
     Indication: CHRONIC OBSTRUCTIVE PULMONARY DISEASE
     Dosage: 1 DF, QD (85 UG/ 43 UG)
     Route: 055
     Dates: start: 20140401, end: 20140701
  8. ACC [Concomitant]
     Active Substance: ACETYLCYSTEINE
     Indication: PRODUCT USED FOR UNKNOWN INDICATION
     Dosage: 600 OT, QD (DAILY IN THE MORNING)
     Route: 065
     Dates: start: 20140417, end: 20140701
  9. SPIRIVA [Concomitant]
     Active Substance: TIOTROPIUM BROMIDE MONOHYDRATE
     Dosage: 18 UG, QD (1 DAILY IN THE MORNING)
     Route: 065
     Dates: start: 20140701
  10. METAMIZOLE [Concomitant]
     Active Substance: METAMIZOLE
     Indication: PRODUCT USED FOR UNKNOWN INDICATION
     Dosage: 20 OT, QID (4XDAILY IN THE MORNING, IN THE AFTERNOON, IN THE EVENING AND AT NIGHT)
     Route: 065
     Dates: start: 20140417, end: 20140701
  11. DECORTIN [Concomitant]
     Active Substance: PREDNISONE
     Indication: PRODUCT USED FOR UNKNOWN INDICATION
     Dosage: 50 MG, QD IN THE MORNING
     Route: 065
     Dates: start: 20140728, end: 20140830
  12. FORMOTEROL [Suspect]
     Active Substance: FORMOTEROL
     Indication: CHRONIC OBSTRUCTIVE PULMONARY DISEASE
     Dosage: 12 UG, BID (DAILY IN THE MORNING AND IN THE EVENING)
     Route: 065
     Dates: start: 20140417, end: 20140701
  13. SPIRIVA [Concomitant]
     Active Substance: TIOTROPIUM BROMIDE MONOHYDRATE
     Indication: CHRONIC OBSTRUCTIVE PULMONARY DISEASE
     Dosage: 18 UG, QD (1 DAILY IN THE MORNING)
     Route: 065
     Dates: start: 20140417, end: 20140701
  14. JUNIK [Concomitant]
     Active Substance: BECLOMETHASONE DIPROPIONATE
     Indication: PRODUCT USED FOR UNKNOWN INDICATION
     Dosage: 100 UG, BID IN MORNING AND EVENING
     Route: 065
     Dates: start: 20140417, end: 20140701

REACTIONS (11)
  - Dyspnoea [Recovered/Resolved]
  - Osteoporosis [Unknown]
  - Respiratory distress [Unknown]
  - Chronic obstructive pulmonary disease [Fatal]
  - Condition aggravated [Unknown]
  - Rales [Recovered/Resolved]
  - Cor pulmonale [Fatal]
  - Chronic obstructive pulmonary disease [Recovered/Resolved]
  - Respiratory failure [Fatal]
  - Productive cough [Recovered/Resolved]
  - Rhonchi [Recovered/Resolved]

NARRATIVE: CASE EVENT DATE: 20140701
